FAERS Safety Report 16954821 (Version 5)
Quarter: 2021Q2

REPORT INFORMATION
  Report Type: Spontaneous
  Country: ES (occurrence: ES)
  Receive Date: 20191024
  Receipt Date: 20210524
  Transmission Date: 20210716
  Serious: Yes (Other)
  Sender: FDA-Public Use
  Company Number: ES-AUROBINDO-AUR-APL-2019-067794

PATIENT
  Age: 54 Year
  Sex: Female

DRUGS (1)
  1. IBUPROFEN. [Suspect]
     Active Substance: IBUPROFEN
     Indication: PRODUCT USED FOR UNKNOWN INDICATION
     Dosage: 2 DOSAGE FORM (IN TOTAL), (1 DF, BID)
     Route: 065

REACTIONS (9)
  - Angioedema [Recovering/Resolving]
  - Beta haemolytic streptococcal infection [Unknown]
  - Condition aggravated [Unknown]
  - Dermatitis atopic [Unknown]
  - Necrotising fasciitis [Unknown]
  - Skin plaque [Unknown]
  - Necrotising fasciitis streptococcal [Unknown]
  - Erythema [Unknown]
  - Purulent discharge [Unknown]
